FAERS Safety Report 15026659 (Version 2)
Quarter: 2018Q2

REPORT INFORMATION
  Report Type: Spontaneous
  Country: AU (occurrence: AU)
  Receive Date: 20180618
  Receipt Date: 20180619
  Transmission Date: 20180711
  Serious: Yes (Death)
  Sender: FDA-Public Use
  Company Number: AU-BAXTER-2018BAX016994

PATIENT

DRUGS (17)
  1. STERILE WATER [Suspect]
     Active Substance: WATER
     Indication: PARENTERAL NUTRITION
     Dosage: WITH VITAMIN K
     Route: 065
  2. SYNTHAMIN [Suspect]
     Active Substance: AMINO ACIDS
     Indication: PARENTERAL NUTRITION
     Dosage: WITH VITAMIN K
     Route: 065
  3. VITAMIN K [Suspect]
     Active Substance: PHYTONADIONE
     Indication: PARENTERAL NUTRITION
     Route: 065
  4. CLINOLEIC 20% SOY OIL AND OLIVE OIL EMULSION FOR INJECTION BAG [Suspect]
     Active Substance: OLIVE OIL\SOYBEAN OIL
     Indication: PARENTERAL NUTRITION
     Dosage: WITH VITAMIN K
     Route: 065
  5. CALCIUM GLUCONATE. [Suspect]
     Active Substance: CALCIUM GLUCONATE
     Dosage: WITHOUT VITAMIN K, BAXTER UNLICENSED SPECIAL
     Route: 065
  6. CLINOLEIC 20% SOY OIL AND OLIVE OIL EMULSION FOR INJECTION BAG [Suspect]
     Active Substance: OLIVE OIL\SOYBEAN OIL
     Dosage: WITHOUT VITAMIN K
     Route: 065
  7. CERNEVIT [Suspect]
     Active Substance: VITAMINS
     Dosage: WITHOUT VITAMIN K
     Route: 065
  8. GLUCOSE [Suspect]
     Active Substance: DEXTROSE
     Indication: PARENTERAL NUTRITION
     Dosage: WITH VITAMIN K, BAXTER UNLICENSED SPECIAL
     Route: 065
  9. ADULT TRACE ELEMENTS [Suspect]
     Active Substance: MINERALS
     Indication: PARENTERAL NUTRITION
     Dosage: WITH VITAMIN K, BAXTER UNLICENSED SPECIAL
     Route: 065
  10. WATER FOR INJECTION [Suspect]
     Active Substance: WATER
     Indication: PARENTERAL NUTRITION
     Dosage: WITH VITAMIN K, BAXTER UNLICENSED SPECIAL
     Route: 065
  11. STERILE WATER [Suspect]
     Active Substance: WATER
     Dosage: WITHOUT VITAMIN K
     Route: 065
  12. CERNEVIT [Suspect]
     Active Substance: VITAMINS
     Indication: PARENTERAL NUTRITION
     Dosage: WITH VITAMIN K
     Route: 065
  13. ADULT TRACE ELEMENTS [Suspect]
     Active Substance: MINERALS
     Dosage: WITHOUT VITAMIN K, BAXTER UNLICENSED SPECIAL
     Route: 065
  14. SYNTHAMIN [Suspect]
     Active Substance: AMINO ACIDS
     Dosage: WITHOUT VITAMIN K
     Route: 065
  15. WATER FOR INJECTION [Suspect]
     Active Substance: WATER
     Dosage: WITHOUT VITAMIN K, BAXTER UNLICENSED SPECIAL
     Route: 065
  16. GLUCOSE [Suspect]
     Active Substance: DEXTROSE
     Dosage: WITHOUT VITAMIN K, BAXTER UNLICENSED SPECIAL
     Route: 065
  17. CALCIUM GLUCONATE. [Suspect]
     Active Substance: CALCIUM GLUCONATE
     Indication: PARENTERAL NUTRITION
     Dosage: WITH VITAMIN K, BAXTER UNLICENSED SPECIAL
     Route: 065

REACTIONS (2)
  - Product use in unapproved indication [None]
  - Death [Fatal]

NARRATIVE: CASE EVENT DATE: 20180607
